FAERS Safety Report 12630596 (Version 2)
Quarter: 2016Q4

REPORT INFORMATION
  Report Type: Report from Study
  Country: CO (occurrence: CO)
  Receive Date: 20160808
  Receipt Date: 20161011
  Transmission Date: 20170207
  Serious: Yes (Other)
  Sender: FDA-Public Use
  Company Number: CO-SA-2016SA141368

PATIENT
  Age: 58 Year
  Sex: Male
  Weight: 69 kg

DRUGS (1)
  1. LEMTRADA [Suspect]
     Active Substance: ALEMTUZUMAB
     Indication: MULTIPLE SCLEROSIS
     Route: 042
     Dates: start: 20160627, end: 20160701

REACTIONS (4)
  - Blood thyroid stimulating hormone increased [Unknown]
  - Leukopenia [Unknown]
  - Lymphopenia [Not Recovered/Not Resolved]
  - Anaemia [Not Recovered/Not Resolved]

NARRATIVE: CASE EVENT DATE: 201607
